FAERS Safety Report 15405920 (Version 1)
Quarter: 2018Q3

REPORT INFORMATION
  Report Type: Report from Study
  Country: CA (occurrence: CA)
  Receive Date: 20180920
  Receipt Date: 20180920
  Transmission Date: 20181010
  Serious: Yes (Other)
  Sender: FDA-Public Use
  Company Number: CA-ROCHE-2185323

PATIENT
  Sex: Female

DRUGS (16)
  1. DIPHENHYDRAMINE. [Concomitant]
     Active Substance: DIPHENHYDRAMINE
     Indication: PREMEDICATION
     Route: 048
     Dates: start: 20120621
  2. ADALAT [Concomitant]
     Active Substance: NIFEDIPINE
  3. GABAPENTIN. [Concomitant]
     Active Substance: GABAPENTIN
  4. METFORMIN [Concomitant]
     Active Substance: METFORMIN HYDROCHLORIDE
  5. RITUXAN [Suspect]
     Active Substance: RITUXIMAB
     Indication: DERMATOMYOSITIS
     Dosage: DAY 1, 15, ONGOING: YES
     Route: 042
     Dates: start: 20120621
  6. ACETAMINOPHEN. [Concomitant]
     Active Substance: ACETAMINOPHEN
     Indication: PREMEDICATION
     Dosage: ONGOING: YES
     Route: 048
     Dates: start: 20120621
  7. RAMIPRIL. [Concomitant]
     Active Substance: RAMIPRIL
  8. PIMECROLIMUS [Concomitant]
     Active Substance: PIMECROLIMUS
  9. ALENDRONATE [Concomitant]
     Active Substance: ALENDRONATE SODIUM
  10. TRIAMCINOLONE ACETATE [Concomitant]
     Active Substance: TRIAMCINOLONE ACETONIDE
  11. CELLCEPT [Suspect]
     Active Substance: MYCOPHENOLATE MOFETIL\MYCOPHENOLATE MOFETIL HYDROCHLORIDE
     Indication: PRODUCT USED FOR UNKNOWN INDICATION
     Dosage: CURRENTLY TOLERATING A DOSE OF 1,500 MGM/DAY.
     Route: 065
  12. SALBUTAMOL [Concomitant]
     Active Substance: ALBUTEROL
  13. METHYLPREDNISOLONE. [Concomitant]
     Active Substance: METHYLPREDNISOLONE
     Indication: PREMEDICATION
     Route: 042
     Dates: start: 20120621
  14. SYNTHROID [Concomitant]
     Active Substance: LEVOTHYROXINE SODIUM
  15. RITUXAN [Suspect]
     Active Substance: RITUXIMAB
     Indication: INTERSTITIAL LUNG DISEASE
  16. HYDROMORPHONE [Concomitant]
     Active Substance: HYDROMORPHONE

REACTIONS (8)
  - Neutropenia [Unknown]
  - Cough [Recovered/Resolved]
  - Post herpetic neuralgia [Unknown]
  - Intervertebral discitis [Unknown]
  - Nerve block [Unknown]
  - Back pain [Unknown]
  - Decreased appetite [Recovered/Resolved]
  - Rash [Unknown]
